FAERS Safety Report 4574439-8 (Version None)
Quarter: 2005Q1

REPORT INFORMATION
  Report Type: 
  Country: None (occurrence: None)
  Receive Date: 20050208
  Receipt Date: 20010529
  Transmission Date: 20050727
  Serious: No
  Sender: FDA-Public Use
  Company Number: US-GLAXOSMITHKLINE-A0348346A

PATIENT
  Age: 49 Year
  Sex: Male
  Weight: 104.31 kg

DRUGS (9)
  1. PAXIL [Suspect]
     Indication: DEPRESSION
     Dosage: 20MG PER DAY
     Route: 048
     Dates: start: 20001204, end: 20010524
  2. PAXIL [Suspect]
     Dosage: 20MG PER DAY
     Route: 048
  3. PRILOSEC [Concomitant]
  4. FLOMAX [Concomitant]
  5. VIOXX [Concomitant]
  6. ALBUTEROL [Concomitant]
  7. NEXIUM [Concomitant]
  8. HYTRIN [Concomitant]
  9. NEURONTIN [Concomitant]

REACTIONS (16)
  - DEPRESSION [None]
  - DISABILITY [None]
  - DISTURBANCE IN ATTENTION [None]
  - DRUG WITHDRAWAL SYNDROME [None]
  - DYSGEUSIA [None]
  - DYSURIA [None]
  - FEELING ABNORMAL [None]
  - HEART RATE DECREASED [None]
  - HEART RATE INCREASED [None]
  - HOT FLUSH [None]
  - HYPERHIDROSIS [None]
  - HYPERVIGILANCE [None]
  - IMPAIRED DRIVING ABILITY [None]
  - NYSTAGMUS [None]
  - PALPITATIONS [None]
  - SUICIDAL IDEATION [None]
